FAERS Safety Report 7561875-0 (Version None)
Quarter: 2011Q2

REPORT INFORMATION
  Report Type: 
  Country: None (occurrence: None)
  Receive Date: 20110621
  Receipt Date: 20110608
  Transmission Date: 20111010
  Serious: Yes (Hospitalization, Other)
  Sender: FDA-Public Use
  Company Number: PHHY2011US50836

PATIENT
  Age: 66 Year
  Sex: Male
  Weight: 65 kg

DRUGS (8)
  1. PROPRANOLOL [Concomitant]
  2. VERPAMIL HCL [Concomitant]
  3. MYCOPHENOLATE MEFETIL [Concomitant]
     Indication: PROPHYLAXIS AGAINST TRANSPLANT REJECTION
  4. METHYLPREDNISOLONE [Concomitant]
     Indication: PROPHYLAXIS AGAINST TRANSPLANT REJECTION
  5. METOPROLOL TARTRATE [Concomitant]
  6. SANDIMMUNE [Suspect]
     Indication: PROPHYLAXIS AGAINST TRANSPLANT REJECTION
  7. ATENOLOL [Concomitant]
  8. WARFARIN SODIUM [Concomitant]

REACTIONS (3)
  - ATRIOVENTRICULAR BLOCK [None]
  - SYNCOPE [None]
  - LOSS OF CONSCIOUSNESS [None]
